FAERS Safety Report 6427352-5 (Version None)
Quarter: 2009Q4

REPORT INFORMATION
  Report Type: 
  Country: None (occurrence: None)
  Receive Date: 20091104
  Receipt Date: 20091022
  Transmission Date: 20100525
  Serious: Yes (Hospitalization, Other)
  Sender: FDA-Public Use
  Company Number: US-PFIZER INC-2009290428

PATIENT
  Age: 24 Year
  Sex: Female

DRUGS (4)
  1. ADRIAMYCIN PFS [Suspect]
     Indication: IMMUNOBLASTIC LYMPHOMA
     Dosage: 50 MG/M2, 1X/DAY, CYCLIC
     Route: 042
  2. VINCRISTINE SULFATE [Suspect]
     Indication: IMMUNOBLASTIC LYMPHOMA
     Dosage: 2 MG, CYCLIC
     Route: 042
  3. CYCLOPHOSPHAMIDE [Suspect]
     Indication: IMMUNOBLASTIC LYMPHOMA
     Dosage: 750 MG/M2, 1X/DAY, CYCLIC
     Route: 042
  4. PREDNISONE [Concomitant]

REACTIONS (1)
  - PANCREATITIS ACUTE [None]
